FAERS Safety Report 24272278 (Version 3)
Quarter: 2025Q1

REPORT INFORMATION
  Report Type: Report from Study
  Country: US (occurrence: US)
  Receive Date: 20240902
  Receipt Date: 20250303
  Transmission Date: 20250409
  Serious: Yes (Hospitalization, Other)
  Sender: ABBVIE
  Company Number: US-ABBVIE-5899482

PATIENT
  Age: 77 Year
  Sex: Female

DRUGS (2)
  1. SKYRIZI [Suspect]
     Active Substance: RISANKIZUMAB-RZAA
     Indication: Psoriatic arthropathy
     Route: 058
     Dates: start: 20240307
  2. SKYRIZI [Suspect]
     Active Substance: RISANKIZUMAB-RZAA
     Route: 058
     Dates: start: 202407, end: 202409

REACTIONS (3)
  - Fall [Unknown]
  - Postoperative wound infection [Unknown]
  - Cervical vertebral fracture [Recovering/Resolving]

NARRATIVE: CASE EVENT DATE: 20240801
